FAERS Safety Report 19422282 (Version 1)
Quarter: 2021Q2

REPORT INFORMATION
  Report Type: Spontaneous
  Country: US (occurrence: US)
  Receive Date: 20210616
  Receipt Date: 20210616
  Transmission Date: 20210717
  Serious: Yes (Hospitalization)
  Sender: FDA-Public Use
  Company Number: None

PATIENT
  Sex: Male

DRUGS (8)
  1. SILDENAFIL, 20 MG [Suspect]
     Active Substance: SILDENAFIL
     Indication: SYSTEMIC SCLERODERMA
     Dosage: ?          OTHER FREQUENCY:EVERY 8 WEEKS;?
     Route: 048
     Dates: start: 20200815
  2. FLUOXETINE [Concomitant]
     Active Substance: FLUOXETINE HYDROCHLORIDE
  3. METOCLOPRAM [Concomitant]
     Active Substance: METOCLOPRAMIDE
  4. PREDNISONE. [Concomitant]
     Active Substance: PREDNISONE
  5. DILTIAZEM. [Concomitant]
     Active Substance: DILTIAZEM
  6. ATOVASQUONE [Concomitant]
  7. BENZONATATE. [Concomitant]
     Active Substance: BENZONATATE
  8. PANTOPRAZOLE [Concomitant]
     Active Substance: PANTOPRAZOLE

REACTIONS (1)
  - Transplant [None]
